FAERS Safety Report 17550576 (Version 5)
Quarter: 2022Q2

REPORT INFORMATION
  Report Type: Spontaneous
  Country: US (occurrence: US)
  Receive Date: 20200317
  Receipt Date: 20220502
  Transmission Date: 20220721
  Serious: No
  Sender: FDA-Public Use
  Company Number: US-PFIZER INC-2020114633

PATIENT
  Age: 54 Year
  Sex: Female
  Weight: 95.4 kg

DRUGS (15)
  1. LYRICA [Suspect]
     Active Substance: PREGABALIN
     Indication: Fibromyalgia
     Dosage: 50 MG, DAILY
  2. LYRICA [Suspect]
     Active Substance: PREGABALIN
     Dosage: 150 MG, 3X/DAY (ONE CAPSULE THREE TIMES A DAY BY MOUTH)
     Route: 048
     Dates: start: 2005
  3. GABAPENTIN [Concomitant]
     Active Substance: GABAPENTIN
     Indication: Fibromyalgia
     Dosage: 1200 MG, 3X/DAY (600 MG TABLETS 2 TABLETS THREE TIMES DAILY BY MOUTH)
     Route: 048
     Dates: start: 2015
  4. GABAPENTIN [Concomitant]
     Active Substance: GABAPENTIN
     Dosage: UNK
     Dates: start: 2010
  5. HYDROCODONE [Concomitant]
     Active Substance: HYDROCODONE
     Indication: Pain
     Dosage: UNK, DAILY [10/325. 6 A DAY BY MOUTH]
     Route: 048
     Dates: start: 2011
  6. IBUPROFEN SODIUM [Concomitant]
     Active Substance: IBUPROFEN SODIUM
     Dosage: 800 MG, 3X/DAY
     Dates: start: 2010
  7. IRON [Concomitant]
     Active Substance: IRON
     Indication: Anaemia
     Dosage: 65 MG, 2X/DAY (65 MG. TWICE A DAY BY MOUTH)
     Route: 048
     Dates: start: 201903
  8. IRON [Concomitant]
     Active Substance: IRON
     Dosage: UNK
     Dates: start: 2018
  9. OMEPRAZOLE [Concomitant]
     Active Substance: OMEPRAZOLE
     Indication: Gastrooesophageal reflux disease
     Dosage: 20 MG, 1X/DAY
     Dates: start: 2000
  10. EFFEXOR [Concomitant]
     Active Substance: VENLAFAXINE HYDROCHLORIDE
     Indication: Depression
     Dosage: 150 MG, 1X/DAY
     Dates: start: 1993
  11. EFFEXOR [Concomitant]
     Active Substance: VENLAFAXINE HYDROCHLORIDE
     Dosage: UNK
     Dates: start: 2000
  12. VITAMIN D3 [Concomitant]
     Active Substance: CHOLECALCIFEROL
     Dosage: 10000 IU, DAILY[125 MCG PER PEARL BY MOUTH. 2 PEARLS A DAY]
     Route: 048
     Dates: start: 2005
  13. VITAMIN D3 [Concomitant]
     Active Substance: CHOLECALCIFEROL
     Dosage: UNK
     Dates: start: 2010
  14. DIETARY SUPPLEMENT [Concomitant]
     Active Substance: DIETARY SUPPLEMENT
     Indication: Hot flush
     Dosage: UNK
     Dates: start: 2019
  15. ASPIRIN\BUTALBITAL\CAFFEINE\PHENACETIN [Concomitant]
     Active Substance: ASPIRIN\BUTALBITAL\CAFFEINE\PHENACETIN
     Indication: Tension headache
     Dosage: 1 DF, AS NEEDED (50/325-40. TAKE ONE AS NEEDED AND AFTER 1 HOUR HEADACHE HAS NOT SUBSIDED, TAKE ANO)
     Dates: start: 2011

REACTIONS (5)
  - Intentional product use issue [Unknown]
  - Product dose omission issue [Unknown]
  - Tension headache [Recovered/Resolved]
  - Nodule [Not Recovered/Not Resolved]
  - Rhinorrhoea [Unknown]

NARRATIVE: CASE EVENT DATE: 20120101
